FAERS Safety Report 11439607 (Version 1)
Quarter: 2015Q3

REPORT INFORMATION
  Report Type: Spontaneous
  Country: PK (occurrence: PK)
  Receive Date: 20150901
  Receipt Date: 20150901
  Transmission Date: 20151125
  Serious: Yes (Death)
  Sender: FDA-Public Use
  Company Number: PK-ROCHE-1627957

PATIENT
  Age: 81 Year
  Sex: Female

DRUGS (2)
  1. HERCEPTIN [Suspect]
     Active Substance: TRASTUZUMAB
     Indication: BREAST CANCER
     Dosage: 4 CYCLES IN 2014
     Route: 042
     Dates: start: 2014
  2. HERCEPTIN [Suspect]
     Active Substance: TRASTUZUMAB
     Dosage: 1 CYCLES IN 2015
     Route: 042
     Dates: start: 20150811

REACTIONS (3)
  - Vomiting [Recovering/Resolving]
  - Cough [Unknown]
  - Death [Fatal]

NARRATIVE: CASE EVENT DATE: 201506
